FAERS Safety Report 4351133-X (Version None)
Quarter: 2004Q2

REPORT INFORMATION
  Report Type: 
  Country: None (occurrence: None)
  Receive Date: 20040427
  Receipt Date: 20040420
  Transmission Date: 20050107
  Serious: Yes (Death, Hospitalization)
  Sender: FDA-Public Use
  Company Number: 2004207973NL

PATIENT
  Age: 68 Year
  Sex: Female

DRUGS (7)
  1. CELEBREX [Suspect]
     Indication: OVARIAN CANCER
     Dosage: 400 MG, BID, ORAL
     Route: 048
     Dates: start: 20031217, end: 20040210
  2. CARBOPLATIN [Suspect]
     Indication: OVARIAN CANCER
     Dosage: SEE IMAGE
     Dates: start: 20040107, end: 20040108
  3. CARBOPLATIN [Suspect]
     Indication: OVARIAN CANCER
     Dosage: SEE IMAGE
     Dates: start: 20031217
  4. DOCETAXEL (DOCETAXEL) [Suspect]
     Indication: OVARIAN CANCER
     Dosage: SEE IMAGE
     Dates: start: 20040107, end: 20040103
  5. DOCETAXEL (DOCETAXEL) [Suspect]
     Indication: OVARIAN CANCER
     Dosage: SEE IMAGE
     Dates: start: 20031217
  6. AUGMENTIN [Concomitant]
  7. PANTOZOL (PANTOPRAZOLE SODIUM) [Concomitant]

REACTIONS (8)
  - BLOOD GLUCOSE ABNORMAL [None]
  - BRONCHOPLEURAL FISTULA [None]
  - DUODENAL ULCER [None]
  - HAEMATEMESIS [None]
  - MELAENA [None]
  - NECROSIS [None]
  - RESPIRATORY FAILURE [None]
  - WHITE BLOOD CELL COUNT DECREASED [None]
